FAERS Safety Report 7487462-0 (Version None)
Quarter: 2011Q2

REPORT INFORMATION
  Report Type: 
  Country: None (occurrence: None)
  Receive Date: 20110510
  Receipt Date: 20110504
  Transmission Date: 20111010
  Serious: Yes (Hospitalization, Congenital Anomaly, Other)
  Sender: FDA-Public Use
  Company Number: 2010102961

PATIENT
  Age: 4 Day
  Sex: Female

DRUGS (2)
  1. FRAGMIN [Suspect]
     Indication: THROMBOSIS PROPHYLAXIS
     Dosage: 5000 IU, 1X/DAY, TRANSPLACENTAL; 7500 IU, 1X/DAY, TRANSPLACENTAL
     Route: 064
     Dates: start: 20100812
  2. NIFEREX (POLYSACCHARIDE-IRON COMPLEX) TABLET [Concomitant]

REACTIONS (4)
  - MECONIUM IN AMNIOTIC FLUID [None]
  - NEONATAL TACHYPNOEA [None]
  - HAND DEFORMITY [None]
  - MATERNAL DRUGS AFFECTING FOETUS [None]
